FAERS Safety Report 23080807 (Version 1)
Quarter: 2023Q4

REPORT INFORMATION
  Report Type: Spontaneous
  Country: None (occurrence: US)
  Receive Date: 20231018
  Receipt Date: 20231018
  Transmission Date: 20240110
  Serious: No
  Sender: FDA-Public Use
  Company Number: US-LGM Pharma Solutions, LLC-2147245

PATIENT
  Age: 68 Year
  Sex: Female
  Weight: 79.545 kg

DRUGS (2)
  1. POLYETHYLENE GLYCOL 3350 [Suspect]
     Active Substance: POLYETHYLENE GLYCOL 3350
     Indication: Product used for unknown indication
     Route: 048
  2. Stool Softener, (Unspecified) [Concomitant]

REACTIONS (2)
  - Throat irritation [Unknown]
  - Dysgeusia [Unknown]
